FAERS Safety Report 8965216 (Version 1)
Quarter: 2012Q4

REPORT INFORMATION
  Report Type: 
  Country: US (occurrence: US)
  Receive Date: 20121213
  Receipt Date: 20121213
  Transmission Date: 20130627
  Serious: Yes (Other)
  Sender: FDA-Public Use
  Company Number: US-BRISTOL-MYERS SQUIBB COMPANY-16710915

PATIENT
  Age: 63 Year
  Sex: Female
  Weight: 117 kg

DRUGS (1)
  1. IXEMPRA [Suspect]
     Indication: BREAST CANCER
     Dosage: Day 1, Day 15
     Route: 042
     Dates: start: 20110707, end: 20120412

REACTIONS (1)
  - Malignant neoplasm progression [Unknown]
